FAERS Safety Report 5714593-5 (Version None)
Quarter: 2008Q2

REPORT INFORMATION
  Report Type: 
  Country: None (occurrence: None)
  Receive Date: 20080423
  Receipt Date: 20080415
  Transmission Date: 20081010
  Serious: Yes (Other)
  Sender: FDA-Public Use
  Company Number: A0718084A

PATIENT
  Age: 57 Year
  Sex: Female
  Weight: 77.3 kg

DRUGS (2)
  1. PAXIL [Suspect]
     Indication: ANXIETY
     Dosage: 25MG SEE DOSAGE TEXT
     Route: 048
     Dates: start: 20060101, end: 20080301
  2. NO CONCURRENT MEDICATION [Concomitant]

REACTIONS (12)
  - ABNORMAL DREAMS [None]
  - ALCOHOLISM [None]
  - DIZZINESS [None]
  - HANGOVER [None]
  - HEADACHE [None]
  - HYPOAESTHESIA [None]
  - INDIFFERENCE [None]
  - LIBIDO DECREASED [None]
  - NAUSEA [None]
  - TINNITUS [None]
  - VERTIGO [None]
  - WEIGHT INCREASED [None]
